FAERS Safety Report 15336225 (Version 1)
Quarter: 2018Q3

REPORT INFORMATION
  Report Type: Spontaneous
  Country: US (occurrence: US)
  Receive Date: 20180830
  Receipt Date: 20180830
  Transmission Date: 20181010
  Serious: No
  Sender: FDA-Public Use
  Company Number: US-MYLANLABS-2018M1063234

PATIENT
  Sex: Female
  Weight: 54 kg

DRUGS (1)
  1. CLONAZEPAM TABLETS, USP [Suspect]
     Active Substance: CLONAZEPAM
     Indication: TREMOR
     Dosage: 1 MG, TWICE DAILY
     Route: 065
     Dates: end: 201705

REACTIONS (6)
  - Photophobia [Not Recovered/Not Resolved]
  - Off label use [Unknown]
  - Intentional product misuse [Unknown]
  - Unevaluable event [Not Recovered/Not Resolved]
  - Hyperacusis [Not Recovered/Not Resolved]
  - Hyperaesthesia [Not Recovered/Not Resolved]

NARRATIVE: CASE EVENT DATE: 201709
